FAERS Safety Report 6719757-X (Version None)
Quarter: 2010Q2

REPORT INFORMATION
  Report Type: 
  Country: None (occurrence: None)
  Receive Date: 20100511
  Receipt Date: 20100504
  Transmission Date: 20101027
  Serious: Yes (Hospitalization)
  Sender: FDA-Public Use
  Company Number: A0857919A

PATIENT
  Age: 81 Year
  Sex: Female

DRUGS (6)
  1. LANOXIN [Suspect]
     Dosage: .0125MG PER DAY
     Route: 048
  2. UNSPECIFIED MEDICATION [Concomitant]
  3. OXYGEN [Concomitant]
  4. ARICEPT [Concomitant]
  5. NAMENDA [Concomitant]
  6. SPIRIVA [Concomitant]

REACTIONS (4)
  - FALL [None]
  - INFLUENZA [None]
  - LIMB INJURY [None]
  - PNEUMONIA [None]
